FAERS Safety Report 5223984-0 (Version None)
Quarter: 2007Q1

REPORT INFORMATION
  Report Type: 
  Country: None (occurrence: None)
  Receive Date: 20070130
  Receipt Date: 20070123
  Transmission Date: 20070707
  Serious: Yes (Life-Threatening)
  Sender: FDA-Public Use
  Company Number: JP-JPN-A200700040

PATIENT
  Age: 84 Year
  Sex: Female
  Weight: 39 kg

DRUGS (2)
  1. PAXIL [Suspect]
     Indication: RESTLESSNESS
     Dosage: 10MG PER DAY
     Route: 048
     Dates: start: 20061221, end: 20070105
  2. DEPAS [Concomitant]
     Indication: RESTLESSNESS
     Dosage: 1MG PER DAY
     Route: 048
     Dates: start: 20060812

REACTIONS (5)
  - ASCITES [None]
  - BRADYCARDIA [None]
  - CARDIAC FAILURE [None]
  - FACE OEDEMA [None]
  - SINUS BRADYCARDIA [None]
